FAERS Safety Report 16895945 (Version 1)
Quarter: 2019Q4

REPORT INFORMATION
  Report Type: Spontaneous
  Country: US (occurrence: US)
  Receive Date: 20191008
  Receipt Date: 20191008
  Transmission Date: 20200122
  Serious: No
  Sender: FDA-Public Use
  Company Number: US-PERRIGO-19US001901

PATIENT
  Age: 18 Year
  Sex: Female
  Weight: 90.7 kg

DRUGS (1)
  1. IMIQUIMOD. [Suspect]
     Active Substance: IMIQUIMOD
     Indication: ANOGENITAL WARTS
     Dosage: SMALL AMOUNT, BID
     Route: 061
     Dates: start: 20190201, end: 20190208

REACTIONS (7)
  - Application site scar [Not Recovered/Not Resolved]
  - Application site erythema [Recovering/Resolving]
  - Headache [Recovered/Resolved]
  - Dysuria [Recovering/Resolving]
  - Application site pain [Recovering/Resolving]
  - Inappropriate schedule of product administration [Recovered/Resolved]
  - Application site vesicles [Not Recovered/Not Resolved]

NARRATIVE: CASE EVENT DATE: 20190201
